FAERS Safety Report 9438048 (Version 1)
Quarter: 2013Q3

REPORT INFORMATION
  Report Type: Spontaneous
  Country: US (occurrence: US)
  Receive Date: 20130802
  Receipt Date: 20130802
  Transmission Date: 20140515
  Serious: Yes (Death)
  Sender: FDA-Public Use
  Company Number: US-BRISTOL-MYERS SQUIBB COMPANY-16742595

PATIENT
  Age: 60 Year
  Sex: Male

DRUGS (3)
  1. COUMADIN [Suspect]
     Route: 065
  2. LETAIRIS [Suspect]
     Dosage: FORMULATION: TAB
     Route: 048
     Dates: start: 20120515, end: 20120523
  3. TREPROSTINIL [Concomitant]
     Route: 058

REACTIONS (1)
  - Haemorrhage intracranial [Fatal]
